FAERS Safety Report 24653815 (Version 1)
Quarter: 2024Q4

REPORT INFORMATION
  Report Type: Spontaneous
  Country: US (occurrence: US)
  Receive Date: 20241122
  Receipt Date: 20241122
  Transmission Date: 20250115
  Serious: Yes (Disabling, Other)
  Sender: CB FLEET
  Company Number: US-PRESTIGE-202411-US-003834

PATIENT
  Sex: Female

DRUGS (5)
  1. MONISTAT 1 COMBINATION PACK [Suspect]
     Active Substance: MICONAZOLE NITRATE
     Indication: Fungal infection
     Dosage: USED ONCE
     Route: 067
  2. MONISTAT 1 COMBINATION PACK [Suspect]
     Active Substance: MICONAZOLE NITRATE
     Route: 067
  3. MONISTAT 1 COMBINATION PACK [Suspect]
     Active Substance: MICONAZOLE NITRATE
     Route: 067
  4. MONISTAT 1 COMBINATION PACK [Suspect]
     Active Substance: MICONAZOLE NITRATE
     Route: 067
  5. MONISTAT 1 COMBINATION PACK [Suspect]
     Active Substance: MICONAZOLE NITRATE
     Route: 067

REACTIONS (5)
  - Syncope [Recovered/Resolved]
  - Tooth injury [Not Recovered/Not Resolved]
  - Vulvovaginal burning sensation [Recovered/Resolved]
  - Vulvovaginal pain [Recovered/Resolved]
  - Vulvovaginal discomfort [Recovered/Resolved]
